FAERS Safety Report 12182596 (Version 1)
Quarter: 2016Q1

REPORT INFORMATION
  Report Type: Report from Study
  Country: US (occurrence: US)
  Receive Date: 20160316
  Receipt Date: 20160316
  Transmission Date: 20160526
  Serious: Yes (Death, Life-Threatening, Hospitalization, Other)
  Sender: FDA-Public Use
  Company Number: US-009507513-1603USA004201

PATIENT
  Age: 53 Year
  Sex: Male

DRUGS (5)
  1. LEVOTHYROXINE SODIUM. [Concomitant]
     Active Substance: LEVOTHYROXINE SODIUM
     Indication: THYROIDECTOMY
     Dosage: 175 MICROGRAM, QD
     Route: 048
     Dates: start: 1997
  2. ALLOPURINOL. [Concomitant]
     Active Substance: ALLOPURINOL
     Indication: GOUT
     Dosage: 300 MG, QD
     Route: 048
     Dates: start: 2010
  3. ABT-414 [Suspect]
     Active Substance: INVESTIGATIONAL PRODUCT
     Indication: GLIOBLASTOMA
     Dosage: TOTAL DAILY DOSE: D1 AND D15 (98 MG)
     Route: 042
     Dates: start: 20151109, end: 20160126
  4. TEMOZOLOMIDE. [Suspect]
     Active Substance: TEMOZOLOMIDE
     Indication: GLIOBLASTOMA
     Dosage: UNK
     Route: 042
  5. KEPPRA [Concomitant]
     Active Substance: LEVETIRACETAM
     Indication: SEIZURE
     Dosage: 500 MG, QD
     Route: 048
     Dates: start: 201409

REACTIONS (2)
  - Pulmonary embolism [Unknown]
  - Seizure [Fatal]

NARRATIVE: CASE EVENT DATE: 20160202
